FAERS Safety Report 11046909 (Version 2)
Quarter: 2015Q4

REPORT INFORMATION
  Report Type: Report from Study
  Country: US (occurrence: US)
  Receive Date: 20150420
  Receipt Date: 20151224
  Transmission Date: 20160304
  Serious: Yes (Hospitalization)
  Sender: FDA-Public Use
  Company Number: US-SA-2015SA048427

PATIENT
  Age: 32 Year
  Sex: Male

DRUGS (5)
  1. CERDELGA [Interacting]
     Active Substance: ELIGLUSTAT
     Indication: GAUCHER^S DISEASE
     Route: 048
     Dates: start: 20150324
  2. LITHIUM. [Concomitant]
     Active Substance: LITHIUM
     Dates: start: 2013
  3. SEROQUEL [Concomitant]
     Active Substance: QUETIAPINE FUMARATE
     Dates: start: 2013
  4. COGENTIN [Suspect]
     Active Substance: BENZTROPINE MESYLATE
     Route: 065
  5. GEODON [Interacting]
     Active Substance: ZIPRASIDONE HYDROCHLORIDE\ZIPRASIDONE MESYLATE
     Indication: PSYCHOTIC DISORDER
     Route: 065
     Dates: start: 201504

REACTIONS (2)
  - Drug interaction [Recovered/Resolved]
  - Psychotic disorder [Recovered/Resolved]

NARRATIVE: CASE EVENT DATE: 20150408
